FAERS Safety Report 19215615 (Version 1)
Quarter: 2021Q2

REPORT INFORMATION
  Report Type: Spontaneous
  Country: CN (occurrence: CN)
  Receive Date: 20210504
  Receipt Date: 20210504
  Transmission Date: 20210717
  Serious: Yes (Other)
  Sender: FDA-Public Use
  Company Number: CN-BAXTER-2021BAX009202

PATIENT
  Age: 52 Year
  Sex: Female
  Weight: 58 kg

DRUGS (8)
  1. ENDOXAN [Suspect]
     Active Substance: CYCLOPHOSPHAMIDE
     Indication: BREAST CANCER FEMALE
     Dosage: EC REGIMEN: 1ST CHEMOTHERAPY; ENDOXAN 1 G + 0.9% SODIUM CHLORIDE 500ML
     Route: 041
     Dates: start: 20210313, end: 20210313
  2. 0.9% SODIUM CHLORIDE INJECTION [Suspect]
     Active Substance: SODIUM CHLORIDE
     Dosage: EC REGIMEN: DOSE RE?INTRODUCED; 2ND CHEMOTHERAPY: ENDOXAN 1 G + 0.9% SODIUM CHLORIDE 500ML
     Route: 041
     Dates: start: 20210404, end: 20210404
  3. 5% GLUCOSE  INJECTION [Suspect]
     Active Substance: DEXTROSE
     Indication: MEDICATION DILUTION
     Dosage: EC REGIMEN: 1ST CHEMOTHERAPY: AIDASHENG 140 MG + 5% GLUCOSE INJECTION 100ML
     Route: 041
     Dates: start: 20210313, end: 20210313
  4. ENDOXAN [Suspect]
     Active Substance: CYCLOPHOSPHAMIDE
     Dosage: EC REGIMEN: DOSE RE?INTRODUCED; 2ND CHEMOTHERAPY: ENDOXAN 1 G + 0.9% SODIUM CHLORIDE 500ML
     Route: 041
     Dates: start: 20210404, end: 20210404
  5. 0.9% SODIUM CHLORIDE INJECTION [Suspect]
     Active Substance: SODIUM CHLORIDE
     Indication: MEDICATION DILUTION
     Dosage: EC REGIMEN: 1ST CHEMOTHERAPY; ENDOXAN 1 G + 0.9% SODIUM CHLORIDE 500ML
     Route: 041
     Dates: start: 20210313, end: 20210313
  6. 5% GLUCOSE  INJECTION [Suspect]
     Active Substance: DEXTROSE
     Dosage: EC REGIMEN: DOSE RE?INTRODUCED; 2ND CHEMOTHERAPY: AIDASHENG 140 MG + 5% GLUCOSE INJECTION 100ML
     Route: 041
     Dates: start: 20210404, end: 20210404
  7. AIDASHENG [Suspect]
     Active Substance: EPIRUBICIN HYDROCHLORIDE
     Dosage: EC REGIMEN: DOSE RE?INTRODUCED; 2ND CHEMOTHERAPY: AIDASHENG 140 MG + 5% GLUCOSE INJECTION 100ML
     Route: 041
     Dates: start: 20210404, end: 20210404
  8. AIDASHENG [Suspect]
     Active Substance: EPIRUBICIN HYDROCHLORIDE
     Indication: BREAST CANCER FEMALE
     Dosage: EC REGIMEN: 1ST CHEMOTHERAPY: AIDASHENG 140 MG + 5% GLUCOSE INJECTION 100ML
     Route: 041
     Dates: start: 20210313, end: 20210313

REACTIONS (5)
  - Myelosuppression [Recovering/Resolving]
  - Haemoglobin decreased [Recovering/Resolving]
  - Red blood cell count decreased [Recovering/Resolving]
  - Neutrophil count decreased [Recovering/Resolving]
  - White blood cell count decreased [Recovering/Resolving]

NARRATIVE: CASE EVENT DATE: 20210403
